FAERS Safety Report 10145653 (Version 1)
Quarter: 2014Q2

REPORT INFORMATION
  Report Type: Spontaneous
  Country: BR (occurrence: BR)
  Receive Date: 20140501
  Receipt Date: 20140501
  Transmission Date: 20141212
  Serious: Yes (Other)
  Sender: FDA-Public Use
  Company Number: PHHY2014BR050930

PATIENT
  Sex: Male

DRUGS (2)
  1. RITALIN LA [Suspect]
     Dosage: 20 MG
  2. RITALIN LA [Suspect]
     Dosage: 20 DF (20 MG) BY ONCE

REACTIONS (2)
  - Feeling abnormal [Unknown]
  - Incorrect dose administered [Unknown]
